FAERS Safety Report 14257468 (Version 1)
Quarter: 2017Q4

REPORT INFORMATION
  Report Type: Spontaneous
  Country: CZ (occurrence: CZ)
  Receive Date: 20171207
  Receipt Date: 20171207
  Transmission Date: 20180321
  Serious: Yes (Other)
  Sender: FDA-Public Use
  Company Number: CZ-VISTAPHARM, INC.-VER201711-001230

PATIENT
  Age: 42 Year
  Sex: Male

DRUGS (7)
  1. PERINDOPRIL [Concomitant]
     Active Substance: PERINDOPRIL
     Indication: HYPERTENSION
  2. AMLODIPINE [Concomitant]
     Active Substance: AMLODIPINE BESYLATE
     Indication: HYPERTENSION
  3. MORPHINE [Suspect]
     Active Substance: MORPHINE
     Indication: CHEST PAIN
     Route: 042
  4. ISOSORBIDDINITRATE [Concomitant]
  5. FUROSEMIDE. [Concomitant]
     Active Substance: FUROSEMIDE
  6. MORPHINE [Suspect]
     Active Substance: MORPHINE
  7. ISOSORBIDDINITRATE [Concomitant]

REACTIONS (1)
  - Ventricular fibrillation [Recovering/Resolving]
